FAERS Safety Report 7729180-7 (Version None)
Quarter: 2011Q3

REPORT INFORMATION
  Report Type: 
  Country: None (occurrence: None)
  Receive Date: 20110906
  Receipt Date: 20110901
  Transmission Date: 20111222
  Serious: Yes (Other)
  Sender: FDA-Public Use
  Company Number: US-PFIZER INC-2011205626

PATIENT
  Sex: Female
  Weight: 78.005 kg

DRUGS (3)
  1. NOVOLOG [Concomitant]
     Dosage: UNK
  2. INSULIN [Concomitant]
     Dosage: UNK
  3. GABAPENTIN [Suspect]
     Indication: NEUROPATHY PERIPHERAL
     Dosage: 400 MG, 2X/DAY
     Route: 048
     Dates: start: 20110829

REACTIONS (7)
  - SUICIDAL IDEATION [None]
  - GENERALISED OEDEMA [None]
  - FEELING ABNORMAL [None]
  - NEUROPATHY PERIPHERAL [None]
  - DIZZINESS [None]
  - DEPRESSION [None]
  - PAIN [None]
